FAERS Safety Report 8129278-8 (Version None)
Quarter: 2012Q1

REPORT INFORMATION
  Report Type: 
  Country: None (occurrence: None)
  Receive Date: 20120210
  Receipt Date: 20111128
  Transmission Date: 20120608
  Serious: No
  Sender: FDA-Public Use
  Company Number: US-BRISTOL-MYERS SQUIBB COMPANY-16252876

PATIENT
  Age: 62 Year
  Sex: Female

DRUGS (13)
  1. ORENCIA [Suspect]
     Indication: RHEUMATOID ARTHRITIS
     Dosage: LAST INFUSION:18NOV2011; NEXT INFUSION:7DEC2011.
     Route: 042
  2. VESICARE [Concomitant]
  3. RISEDRONATE SODIUM [Concomitant]
  4. PREVACID [Concomitant]
  5. PRAVACHOL [Concomitant]
  6. FOLIC ACID [Concomitant]
  7. PREDNISONE [Concomitant]
  8. EVISTA [Concomitant]
  9. SPIRONOLACTONE [Concomitant]
  10. ASPIRIN [Concomitant]
  11. METHOTREXATE [Concomitant]
  12. SYNTHROID [Concomitant]
  13. TEMAZEPAM [Concomitant]

REACTIONS (1)
  - SINUSITIS [None]
